FAERS Safety Report 8209547-3 (Version None)
Quarter: 2012Q1

REPORT INFORMATION
  Report Type: 
  Country: None (occurrence: None)
  Receive Date: 20120314
  Receipt Date: 20120302
  Transmission Date: 20120608
  Serious: No
  Sender: FDA-Public Use
  Company Number: US-B.I. PHARMACEUTICALS,INC./RIDGEFIELD-2012-BP-04096BP

PATIENT
  Sex: Female

DRUGS (10)
  1. PREVACID [Concomitant]
     Indication: GASTROOESOPHAGEAL REFLUX DISEASE
     Dosage: 30 MG
     Route: 048
     Dates: start: 20060101
  2. PRADAXA [Suspect]
     Indication: ATRIAL FIBRILLATION
     Dosage: 150 MG
     Route: 048
     Dates: start: 20110101, end: 20120228
  3. AVAPRO [Concomitant]
     Indication: HYPERTENSION
     Dosage: 300 MG
     Route: 048
     Dates: start: 20060101
  4. NORVASC [Concomitant]
     Indication: HYPERTENSION
     Dosage: 5 MG
     Route: 048
     Dates: start: 20060101
  5. POTASSIUM [Concomitant]
     Indication: PROPHYLAXIS
     Route: 048
     Dates: start: 20060101
  6. SODIUM BICARBONATE [Concomitant]
     Dosage: 650 MG
     Route: 048
     Dates: start: 20110101
  7. ARTHROTEC [Concomitant]
     Indication: ARTHRITIS
     Route: 048
     Dates: start: 20110101
  8. LASIX [Concomitant]
     Indication: CARDIAC FAILURE CONGESTIVE
     Route: 048
     Dates: start: 20060101
  9. ALLOPURINOL [Concomitant]
     Indication: GOUT
     Dosage: 100 MG
     Route: 048
     Dates: start: 20060101
  10. CITALOPRAM [Concomitant]
     Indication: DEPRESSION
     Dosage: 10 MG
     Route: 048
     Dates: start: 20111101

REACTIONS (5)
  - WRIST FRACTURE [None]
  - CONTUSION [None]
  - LIP INJURY [None]
  - HAEMATOMA [None]
  - FALL [None]
